FAERS Safety Report 18168244 (Version 1)
Quarter: 2020Q3

REPORT INFORMATION
  Report Type: Spontaneous
  Country: CN (occurrence: CN)
  Receive Date: 20200819
  Receipt Date: 20200819
  Transmission Date: 20201103
  Serious: Yes (Death, Life-Threatening, Other)
  Sender: FDA-Public Use
  Company Number: CN-ROCHE-2660729

PATIENT
  Age: 77 Year
  Sex: Male
  Weight: 60 kg

DRUGS (3)
  1. ACTILYSE [Suspect]
     Active Substance: ALTEPLASE
     Indication: CEREBROVASCULAR ACCIDENT
     Dosage: 5 MG IV AND THE REMAINING 90% WAS PUMPED (SHORT INTERVAL BETWEEN INTRAVENOUS INJECTION AND PUMPING,
     Route: 042
     Dates: start: 20181218
  2. ASPIRIN. [Concomitant]
     Active Substance: ASPIRIN
     Indication: EXTRASYSTOLES
     Route: 048
  3. URSOFALK [Concomitant]
     Active Substance: URSODIOL
     Indication: AUTOIMMUNE HEPATITIS
     Route: 048

REACTIONS (6)
  - Dyspnoea [Unknown]
  - Death [Fatal]
  - Cerebral haemorrhage [Recovered/Resolved with Sequelae]
  - Decubitus ulcer [Unknown]
  - Haemorrhage [Recovered/Resolved with Sequelae]
  - Coma [Not Recovered/Not Resolved]

NARRATIVE: CASE EVENT DATE: 20181218
